FAERS Safety Report 9055240 (Version 4)
Quarter: 2013Q2

REPORT INFORMATION
  Report Type: Spontaneous
  Country: JP (occurrence: JP)
  Receive Date: 20130206
  Receipt Date: 20130520
  Transmission Date: 20140414
  Serious: Yes (Life-Threatening, Hospitalization, Other)
  Sender: FDA-Public Use
  Company Number: JP-SANOFI-AVENTIS-2013SA010688

PATIENT
  Age: 64 Year
  Sex: Male
  Weight: 57 kg

DRUGS (49)
  1. ELPLAT [Suspect]
     Indication: COLON CANCER
     Dosage: SOLUTION FOR INFUSION
     Route: 041
     Dates: start: 20110413, end: 20110413
  2. ELPLAT [Suspect]
     Indication: COLON CANCER
     Dosage: SOLUTION FOR INFUSION
     Route: 041
     Dates: start: 20110427, end: 20110427
  3. ELPLAT [Suspect]
     Indication: COLON CANCER
     Dosage: SOLUTION FOR INFUSION
     Route: 041
     Dates: start: 20110511, end: 20110511
  4. ELPLAT [Suspect]
     Indication: COLON CANCER
     Dosage: SOLUTION FOR INFUSION
     Route: 041
     Dates: start: 20110525, end: 20110525
  5. ELPLAT [Suspect]
     Indication: COLON CANCER
     Dosage: SOLUTION FOR INFUSION
     Route: 041
     Dates: start: 20110608, end: 20110608
  6. ELPLAT [Suspect]
     Indication: COLON CANCER
     Dosage: SOLUTION FOR INFUSION
     Route: 041
     Dates: start: 20110622, end: 20110622
  7. ELPLAT [Suspect]
     Indication: COLON CANCER
     Dosage: SOLUTION FOR INFUSION
     Route: 041
     Dates: start: 20110706, end: 20110706
  8. ELPLAT [Suspect]
     Indication: COLON CANCER
     Dosage: SOLUTION FOR INFUSION
     Route: 041
     Dates: start: 20110720, end: 20110720
  9. ELPLAT [Suspect]
     Indication: COLON CANCER
     Dosage: SOLUTION FOR INFUSION
     Route: 041
     Dates: start: 20110803, end: 20110803
  10. ELPLAT [Suspect]
     Indication: COLON CANCER
     Dosage: SOLUTION FOR INFUSION
     Route: 041
     Dates: start: 20110831, end: 20110831
  11. ELPLAT [Suspect]
     Indication: COLON CANCER
     Dosage: SOLUTION FOR INFUSION
     Route: 041
     Dates: start: 20110914, end: 20110914
  12. ELPLAT [Suspect]
     Indication: COLON CANCER
     Dosage: SOLUTION FOR INFUSION
     Route: 041
     Dates: start: 20110928, end: 20110928
  13. FLUOROURACIL [Concomitant]
     Indication: COLON CANCER
     Route: 040
     Dates: start: 20110413, end: 20110413
  14. FLUOROURACIL [Concomitant]
     Indication: COLON CANCER
     Route: 041
     Dates: start: 20110413, end: 20110413
  15. FLUOROURACIL [Concomitant]
     Indication: COLON CANCER
     Route: 040
     Dates: start: 20110427, end: 20110427
  16. FLUOROURACIL [Concomitant]
     Indication: COLON CANCER
     Route: 041
     Dates: start: 20110427, end: 20110427
  17. FLUOROURACIL [Concomitant]
     Indication: COLON CANCER
     Route: 040
     Dates: start: 20110511, end: 20110511
  18. FLUOROURACIL [Concomitant]
     Indication: COLON CANCER
     Route: 041
     Dates: start: 20110511, end: 20110511
  19. FLUOROURACIL [Concomitant]
     Indication: COLON CANCER
     Route: 041
     Dates: start: 20110525, end: 20110525
  20. FLUOROURACIL [Concomitant]
     Indication: COLON CANCER
     Route: 040
     Dates: start: 20110525, end: 20110525
  21. FLUOROURACIL [Concomitant]
     Indication: COLON CANCER
     Route: 040
     Dates: start: 20110608, end: 20110608
  22. FLUOROURACIL [Concomitant]
     Indication: COLON CANCER
     Route: 041
     Dates: start: 20110608, end: 20110608
  23. FLUOROURACIL [Concomitant]
     Indication: COLON CANCER
     Route: 040
     Dates: start: 20110622, end: 20110622
  24. FLUOROURACIL [Concomitant]
     Indication: COLON CANCER
     Route: 041
     Dates: start: 20110622, end: 20110622
  25. FLUOROURACIL [Concomitant]
     Indication: COLON CANCER
     Route: 040
     Dates: start: 20110706, end: 20110706
  26. FLUOROURACIL [Concomitant]
     Indication: COLON CANCER
     Route: 041
     Dates: start: 20110706, end: 20110706
  27. FLUOROURACIL [Concomitant]
     Indication: COLON CANCER
     Route: 040
     Dates: start: 20110720, end: 20110720
  28. FLUOROURACIL [Concomitant]
     Indication: COLON CANCER
     Route: 041
     Dates: start: 20110720, end: 20110720
  29. FLUOROURACIL [Concomitant]
     Indication: COLON CANCER
     Route: 040
     Dates: start: 20110803, end: 20110803
  30. FLUOROURACIL [Concomitant]
     Indication: COLON CANCER
     Route: 041
     Dates: start: 20110803, end: 20110803
  31. FLUOROURACIL [Concomitant]
     Indication: COLON CANCER
     Route: 041
     Dates: start: 20110831, end: 20110831
  32. FLUOROURACIL [Concomitant]
     Indication: COLON CANCER
     Route: 040
     Dates: start: 20110831, end: 20110831
  33. FLUOROURACIL [Concomitant]
     Indication: COLON CANCER
     Route: 040
     Dates: start: 20110914, end: 20110914
  34. FLUOROURACIL [Concomitant]
     Indication: COLON CANCER
     Route: 041
     Dates: start: 20110914, end: 20110914
  35. FLUOROURACIL [Concomitant]
     Indication: COLON CANCER
     Route: 040
     Dates: start: 20110928, end: 20110928
  36. FLUOROURACIL [Concomitant]
     Indication: COLON CANCER
     Route: 041
     Dates: start: 20110928, end: 20110928
  37. AVASTIN [Concomitant]
     Indication: COLON CANCER
     Route: 041
     Dates: start: 20110525, end: 20110525
  38. AVASTIN [Concomitant]
     Indication: COLON CANCER
     Route: 041
     Dates: start: 20110608, end: 20110608
  39. AVASTIN [Concomitant]
     Indication: COLON CANCER
     Route: 041
     Dates: start: 20110622, end: 20110622
  40. AVASTIN [Concomitant]
     Indication: COLON CANCER
     Route: 041
     Dates: start: 20110706, end: 20110706
  41. AVASTIN [Concomitant]
     Indication: COLON CANCER
     Route: 041
     Dates: start: 20110720, end: 20110720
  42. AVASTIN [Concomitant]
     Indication: COLON CANCER
     Route: 041
     Dates: start: 20110803, end: 20110803
  43. AVASTIN [Concomitant]
     Indication: COLON CANCER
     Route: 041
     Dates: start: 20110831, end: 20110831
  44. AVASTIN [Concomitant]
     Indication: COLON CANCER
     Route: 041
     Dates: start: 20110914, end: 20110914
  45. AVASTIN [Concomitant]
     Indication: COLON CANCER
     Route: 041
     Dates: start: 20110928, end: 20110928
  46. CALCIUM LEVOFOLINATE [Concomitant]
     Indication: COLON CANCER
     Dates: start: 20110413, end: 20110928
  47. KYTRIL [Concomitant]
     Dates: start: 20110413, end: 20110928
  48. DECADRON [Concomitant]
     Dates: start: 20110413, end: 20110928
  49. POLARAMINE [Concomitant]
     Dates: start: 20110525, end: 20110928

REACTIONS (5)
  - Splenomegaly [Not Recovered/Not Resolved]
  - Varices oesophageal [Recovering/Resolving]
  - Venoocclusive liver disease [Unknown]
  - Platelet count decreased [Not Recovered/Not Resolved]
  - White blood cell count decreased [Unknown]
